FAERS Safety Report 6324177-6 (Version None)
Quarter: 2009Q3

REPORT INFORMATION
  Report Type: 
  Country: None (occurrence: None)
  Receive Date: 20090824
  Receipt Date: 20090701
  Transmission Date: 20100115
  Serious: No
  Sender: FDA-Public Use
  Company Number: US-ABBOTT-09P-163-0576290-00

PATIENT
  Sex: Male
  Weight: 98.972 kg

DRUGS (6)
  1. NIASPAN [Suspect]
     Indication: DRUG USE FOR UNKNOWN INDICATION
     Dosage: AT BEDTIME
     Route: 048
  2. SIMCOR [Suspect]
     Indication: BLOOD CHOLESTEROL INCREASED
     Dosage: 500MG/20MG, 1 IN 1 DAY
     Dates: start: 20090520, end: 20090601
  3. SIMCOR [Suspect]
     Dosage: 750MG/20MG, 1 IN 1 DAY
     Dates: start: 20090601, end: 20090701
  4. TRICOR [Concomitant]
     Indication: BLOOD CHOLESTEROL INCREASED
  5. LISINOPRIL [Concomitant]
     Indication: HYPERTENSION
  6. AVANDARYL [Concomitant]
     Indication: TYPE 2 DIABETES MELLITUS

REACTIONS (6)
  - ADVERSE DRUG REACTION [None]
  - BACK PAIN [None]
  - FLUSHING [None]
  - INCORRECT DRUG ADMINISTRATION DURATION [None]
  - MUSCULAR WEAKNESS [None]
  - URINE ODOUR ABNORMAL [None]
